FAERS Safety Report 13013464 (Version 1)
Quarter: 2016Q4

REPORT INFORMATION
  Report Type: Spontaneous
  Country: US (occurrence: US)
  Receive Date: 20161209
  Receipt Date: 20161209
  Transmission Date: 20170207
  Serious: No
  Sender: FDA-Public Use
  Company Number: US-G+W LABS-GW2016US000198

PATIENT

DRUGS (2)
  1. NYSTATIN. [Suspect]
     Active Substance: NYSTATIN
     Indication: VULVOVAGINAL BURNING SENSATION
     Dosage: UNK
     Route: 067
     Dates: start: 20161120, end: 20161124
  2. NYSTATIN. [Suspect]
     Active Substance: NYSTATIN
     Indication: VULVOVAGINAL BURNING SENSATION

REACTIONS (5)
  - Off label use [Recovered/Resolved]
  - Insomnia [Recovered/Resolved]
  - Pruritus generalised [Recovered/Resolved]
  - Paraesthesia oral [Recovered/Resolved]
  - Incorrect route of drug administration [Recovered/Resolved]

NARRATIVE: CASE EVENT DATE: 201611
